FAERS Safety Report 16678289 (Version 1)
Quarter: 2019Q3

REPORT INFORMATION
  Report Type: Spontaneous
  Country: US (occurrence: US)
  Receive Date: 20190806
  Receipt Date: 20190806
  Transmission Date: 20191007
  Serious: Yes (Life-Threatening, Disabling)
  Sender: FDA-Public Use
  Company Number: None

PATIENT
  Age: 51 Year
  Sex: Female
  Weight: 78.75 kg

DRUGS (3)
  1. COLLAGEN SUPPLEMENTS [Concomitant]
  2. MSK [HUMAN CORD BLOOD HEMATOPOIETIC PROGENITOR CELL] [Suspect]
     Active Substance: HUMAN CORD BLOOD HEMATOPOIETIC PROGENITOR CELL
     Indication: STEM CELL THERAPY
     Dates: start: 20181120, end: 20181121
  3. IBUPROPHEN 800 MG EVERY 4 HOURS [Concomitant]

REACTIONS (12)
  - Tooth extraction [None]
  - Cyst [None]
  - Drug ineffective [None]
  - Procedural pain [None]
  - Injection site pain [None]
  - Eyelid infection [None]
  - Gait inability [None]
  - Peripheral swelling [None]
  - Pain in extremity [None]
  - Gingivitis [None]
  - Arthropathy [None]
  - Suicidal ideation [None]

NARRATIVE: CASE EVENT DATE: 20181104
